FAERS Safety Report 11981621 (Version 2)
Quarter: 2016Q1

REPORT INFORMATION
  Report Type: Report from Study
  Country: DE (occurrence: DE)
  Receive Date: 20160131
  Receipt Date: 20160212
  Transmission Date: 20160526
  Serious: Yes (Other)
  Sender: FDA-Public Use
  Company Number: PHHY2016DE008557

PATIENT
  Sex: Male

DRUGS (5)
  1. PANTOPRAZOLE [Concomitant]
     Active Substance: PANTOPRAZOLE SODIUM
     Indication: GASTROINTESTINAL DISORDER
     Route: 065
  2. ATOSIL [Concomitant]
     Active Substance: PROMETHAZINE HYDROCHLORIDE
     Indication: DEPRESSION
     Dosage: SOME TIMES
     Route: 065
  3. OPIPRAMOL-NEURAXPHARM [Concomitant]
     Indication: DEPRESSION
     Dosage: 100 MG, QD
     Route: 065
  4. GLIVEC [Suspect]
     Active Substance: IMATINIB MESYLATE
     Indication: CHRONIC MYELOID LEUKAEMIA
     Dosage: 400 MG, QD
     Route: 065
  5. IMAP [Concomitant]
     Active Substance: FLUSPIRILENE
     Indication: DEPRESSION
     Dosage: QW
     Route: 065

REACTIONS (3)
  - Suicidal ideation [Recovering/Resolving]
  - Dry throat [Unknown]
  - Nausea [Unknown]
